FAERS Safety Report 7434362-8 (Version None)
Quarter: 2011Q2

REPORT INFORMATION
  Report Type: 
  Country: None (occurrence: None)
  Receive Date: 20110425
  Receipt Date: 20110411
  Transmission Date: 20111010
  Serious: Yes (Other)
  Sender: FDA-Public Use
  Company Number: US-BAYER-2011-032559

PATIENT
  Age: 51 Year
  Sex: Female

DRUGS (5)
  1. INTERFERON BETA-1B [Suspect]
     Dosage: UNK
     Dates: start: 20060522, end: 20060718
  2. INTERFERON BETA-1B [Suspect]
     Dosage: UNK
     Dates: start: 20060819, end: 20100301
  3. INTERFERON BETA-1B [Suspect]
     Indication: RELAPSING-REMITTING MULTIPLE SCLEROSIS
     Dosage: UNK
     Dates: start: 19941109, end: 19950101
  4. INTERFERON BETA-1B [Suspect]
     Dosage: 2 MIU, QOD
     Route: 058
     Dates: start: 20110324
  5. IBUPROFEN [Concomitant]
     Indication: PREMEDICATION
     Dosage: 750 MG, UNK

REACTIONS (5)
  - INJECTION SITE PAIN [None]
  - GAIT DISTURBANCE [None]
  - HEADACHE [None]
  - BLOOD PRESSURE INCREASED [None]
  - HYPERHIDROSIS [None]
